FAERS Safety Report 18022294 (Version 2)
Quarter: 2020Q3

REPORT INFORMATION
  Report Type: Spontaneous
  Country: BR (occurrence: BR)
  Receive Date: 20200715
  Receipt Date: 20200805
  Transmission Date: 20201103
  Serious: Yes (Other)
  Sender: FDA-Public Use
  Company Number: BR-LUNDBECK-DKLU3015717

PATIENT
  Sex: Male

DRUGS (5)
  1. FRISIUM [Suspect]
     Active Substance: CLOBAZAM
     Indication: BRAIN INJURY
  2. FRISIUM [Suspect]
     Active Substance: CLOBAZAM
     Indication: NEUROPATHY PERIPHERAL
     Route: 065
  3. FRISIUM [Suspect]
     Active Substance: CLOBAZAM
     Indication: SEIZURE
  4. URBANIL [Suspect]
     Active Substance: CLOBAZAM
     Indication: PRODUCT USED FOR UNKNOWN INDICATION
     Route: 065
  5. LAMICTAL [Concomitant]
     Active Substance: LAMOTRIGINE
     Indication: PRODUCT USED FOR UNKNOWN INDICATION
     Route: 065

REACTIONS (4)
  - Coma [Unknown]
  - Unevaluable event [Unknown]
  - Drug-induced liver injury [Unknown]
  - Seizure [Unknown]
